FAERS Safety Report 9288432 (Version 1)
Quarter: 2013Q2

REPORT INFORMATION
  Report Type: Spontaneous
  Country: US (occurrence: US)
  Receive Date: 20130514
  Receipt Date: 20130514
  Transmission Date: 20140414
  Serious: No
  Sender: FDA-Public Use
  Company Number: US-OPTIMER PHARMACEUTICALS, INC.-20110024

PATIENT
  Sex: 0

DRUGS (4)
  1. DIFICID [Suspect]
     Indication: CLOSTRIDIUM DIFFICILE COLITIS
     Dosage: 200 MG, BID
     Route: 048
     Dates: start: 20110826, end: 20110904
  2. SYNTHROID [Concomitant]
     Indication: HYPOTHYROIDISM
     Dosage: 5 ?G, QD
  3. BENICAR [Concomitant]
     Indication: HYPERTENSION
     Dosage: 20 MG, QD
  4. MULTIVITAMIN [Concomitant]
     Indication: SUPPLEMENTATION THERAPY
     Dosage: 1 TABLET, QD

REACTIONS (4)
  - Drug ineffective [Unknown]
  - Diarrhoea [Not Recovered/Not Resolved]
  - Incorrect storage of drug [Unknown]
  - Product quality issue [None]
